FAERS Safety Report 8679335 (Version 8)
Quarter: 2012Q4

REPORT INFORMATION
  Report Type: 
  Country: CN (occurrence: CN)
  Receive Date: 20120724
  Receipt Date: 20121026
  Transmission Date: 20130627
  Serious: Yes (Hospitalization, Disabling)
  Sender: FDA-Public Use
  Company Number: PHHY2012CN062698

PATIENT
  Age: 30 Year
  Sex: Male

DRUGS (1)
  1. SEBIVO [Suspect]
     Indication: HEPATITIS B
     Dosage: 600 mg, QD
     Route: 048
     Dates: start: 20110720, end: 20120704

REACTIONS (65)
  - Amyotrophy [Recovering/Resolving]
  - Fluid retention [Recovering/Resolving]
  - Lactic acidosis [Recovering/Resolving]
  - Muscle atrophy [Recovering/Resolving]
  - Arthralgia [Recovered/Resolved]
  - Abdominal pain [Recovering/Resolving]
  - Muscle swelling [Recovering/Resolving]
  - Gait disturbance [Recovering/Resolving]
  - Pain in extremity [Unknown]
  - Aldolase abnormal [Recovering/Resolving]
  - Muscular weakness [Recovering/Resolving]
  - Myoglobin blood increased [Recovering/Resolving]
  - Blood creatine phosphokinase increased [Recovering/Resolving]
  - Gastritis [Unknown]
  - Diarrhoea [Recovering/Resolving]
  - Abdominal pain upper [Unknown]
  - Decreased appetite [Unknown]
  - Abdominal discomfort [Unknown]
  - Multi-organ failure [Unknown]
  - Electrolyte imbalance [Unknown]
  - Acidosis [Unknown]
  - Acute respiratory distress syndrome [Unknown]
  - Lung infection [Unknown]
  - Viral infection [Unknown]
  - Pleural effusion [Unknown]
  - Cardiomegaly [Unknown]
  - Pancreatitis [Unknown]
  - Cholelithiasis [Unknown]
  - Cholecystitis [Unknown]
  - Cholestasis [Unknown]
  - Radiculitis [Unknown]
  - Faeces discoloured [Unknown]
  - Electrocardiogram PR shortened [Unknown]
  - Tricuspid valve incompetence [Unknown]
  - Electrocardiogram QT prolonged [Unknown]
  - Antinuclear antibody positive [Unknown]
  - Renal injury [Unknown]
  - Hypophagia [Unknown]
  - Hypoalbuminaemia [Recovering/Resolving]
  - Shock [Recovering/Resolving]
  - Malaise [Unknown]
  - Cyanosis [Unknown]
  - Dyspnoea [Recovering/Resolving]
  - Chest discomfort [Unknown]
  - Sinus tachycardia [Unknown]
  - Peripheral coldness [Unknown]
  - Respiratory distress [Recovering/Resolving]
  - Blood pressure decreased [Recovering/Resolving]
  - Respiratory rate increased [Unknown]
  - Fall [Recovering/Resolving]
  - Renal failure acute [Recovering/Resolving]
  - Hyperuricaemia [Unknown]
  - Polymyositis [Unknown]
  - Polyneuropathy [Recovering/Resolving]
  - Nerve injury [Recovering/Resolving]
  - Anaesthesia [Recovering/Resolving]
  - Paraesthesia [Unknown]
  - Hypoaesthesia [Recovering/Resolving]
  - Rhabdomyolysis [Recovering/Resolving]
  - Anuria [Recovering/Resolving]
  - Fatigue [Recovering/Resolving]
  - Myalgia [Recovered/Resolved]
  - Nausea [Recovering/Resolving]
  - Vomiting [Recovering/Resolving]
  - Asthenia [Recovering/Resolving]
